FAERS Safety Report 12341743 (Version 1)
Quarter: 2016Q2

REPORT INFORMATION
  Report Type: Spontaneous
  Country: FR (occurrence: FR)
  Receive Date: 20160506
  Receipt Date: 20160506
  Transmission Date: 20160815
  Serious: Yes (Hospitalization, Other)
  Sender: FDA-Public Use
  Company Number: FR-JNJFOC-20160500715

PATIENT
  Age: 96 Year
  Sex: Female

DRUGS (9)
  1. PARACETAMOL [Concomitant]
     Active Substance: ACETAMINOPHEN
     Route: 065
  2. RISPERDAL [Suspect]
     Active Substance: RISPERIDONE
     Indication: AGITATION
     Route: 048
     Dates: end: 20160309
  3. PLAVIX [Concomitant]
     Active Substance: CLOPIDOGREL BISULFATE
     Route: 065
  4. RISPERDAL [Suspect]
     Active Substance: RISPERIDONE
     Indication: AGITATION
     Route: 048
     Dates: start: 20160321
  5. SERESTA [Concomitant]
     Active Substance: OXAZEPAM
     Route: 065
  6. PROZAC [Concomitant]
     Active Substance: FLUOXETINE HYDROCHLORIDE
     Route: 065
  7. DACRYOSERUM [Concomitant]
     Active Substance: BORIC ACID\SODIUM BORATE
     Route: 065
  8. FUROSEMIDE. [Concomitant]
     Active Substance: FUROSEMIDE
     Route: 065
  9. SPASFON [Concomitant]
     Active Substance: PHLOROGLUCINOL
     Route: 065

REACTIONS (9)
  - Negativism [Unknown]
  - Agitation [Unknown]
  - Akathisia [Recovering/Resolving]
  - Adverse event [Unknown]
  - Aggression [Unknown]
  - Bundle branch block left [Unknown]
  - Electrocardiogram QT prolonged [Recovering/Resolving]
  - Parkinsonism [Unknown]
  - Bradycardia [Unknown]

NARRATIVE: CASE EVENT DATE: 201603
